FAERS Safety Report 12671141 (Version 1)
Quarter: 2016Q3

REPORT INFORMATION
  Report Type: Spontaneous
  Country: US (occurrence: US)
  Receive Date: 20160822
  Receipt Date: 20160822
  Transmission Date: 20161109
  Serious: Yes (Hospitalization, Other)
  Sender: FDA-Public Use
  Company Number: US-AMGEN-USASP2016107797

PATIENT
  Age: 61 Year
  Sex: Female

DRUGS (2)
  1. BONIVA [Suspect]
     Active Substance: IBANDRONATE SODIUM
     Indication: PRODUCT USED FOR UNKNOWN INDICATION
     Dosage: UNK
     Route: 065
  2. ENBREL [Suspect]
     Active Substance: ETANERCEPT
     Indication: RHEUMATOID ARTHRITIS
     Dosage: 50 MG, ONCE WEEKLY
     Route: 065

REACTIONS (6)
  - Rheumatoid arthritis [Unknown]
  - Pain in jaw [Unknown]
  - Knee arthroplasty [Unknown]
  - Knee operation [Unknown]
  - Tooth fracture [Unknown]
  - Stress [Unknown]

NARRATIVE: CASE EVENT DATE: 2011
